FAERS Safety Report 25517386 (Version 2)
Quarter: 2025Q4

REPORT INFORMATION
  Report Type: Spontaneous
  Country: US (occurrence: US)
  Receive Date: 20250704
  Receipt Date: 20251120
  Transmission Date: 20260118
  Serious: Yes (Other)
  Sender: RADIUS PHARM
  Company Number: US-RADIUS HEALTH INC.-US-RADIUS-25047428

PATIENT
  Sex: Female
  Weight: 43.084 kg

DRUGS (9)
  1. TYMLOS [Suspect]
     Active Substance: ABALOPARATIDE
     Indication: Osteoporosis
     Dosage: 80 MICROGRAM, QD
     Route: 058
     Dates: start: 20250418, end: 2025
  2. CALCIUM [Concomitant]
     Active Substance: CALCIUM
     Indication: Product used for unknown indication
     Dosage: UNK
  3. VITAMIN D3 [Concomitant]
     Active Substance: CHOLECALCIFEROL
     Indication: Product used for unknown indication
     Dosage: UNK
  4. K VIT [Concomitant]
     Indication: Product used for unknown indication
     Dosage: UNK
  5. VITAMIN C [Concomitant]
     Active Substance: ASCORBIC ACID
     Indication: Product used for unknown indication
     Dosage: UNK
  6. VITAMIN B COMPLEX [Concomitant]
     Active Substance: CYANOCOBALAMIN\DEXPANTHENOL\NIACINAMIDE\PYRIDOXINE HYDROCHLORIDE\RIBOFLAVIN 5^-PHOSPHATE SODIUM\THIA
     Indication: Product used for unknown indication
     Dosage: UNK
  7. BIOTIN [Concomitant]
     Active Substance: BIOTIN
     Indication: Product used for unknown indication
     Dosage: UNK
  8. MEDICINAL MUSHROOMS [Concomitant]
     Indication: Supplementation therapy
     Dosage: UNK
  9. CREATINE [Concomitant]
     Active Substance: CREATINE
     Indication: Muscle building therapy
     Dosage: UNK

REACTIONS (17)
  - Multiple fractures [Unknown]
  - Road traffic accident [Recovering/Resolving]
  - Abdominal pain [Recovering/Resolving]
  - Back pain [Recovering/Resolving]
  - Pain [Recovered/Resolved]
  - Muscle spasms [Unknown]
  - Heart rate increased [Recovering/Resolving]
  - Headache [Recovering/Resolving]
  - Asthenia [Recovering/Resolving]
  - Paraesthesia [Unknown]
  - Abdominal discomfort [Recovering/Resolving]
  - Feeling abnormal [Unknown]
  - Mobility decreased [Recovered/Resolved]
  - Tremor [Unknown]
  - Gait disturbance [Recovering/Resolving]
  - Fear [Unknown]
  - Fatigue [Recovering/Resolving]

NARRATIVE: CASE EVENT DATE: 20250101
